FAERS Safety Report 7367118-5 (Version None)
Quarter: 2011Q1

REPORT INFORMATION
  Report Type: 
  Country: None (occurrence: None)
  Receive Date: 20110322
  Receipt Date: 20110320
  Transmission Date: 20110831
  Serious: Yes (Death, Hospitalization)
  Sender: FDA-Public Use
  Company Number: CA-B.I. PHARMACEUTICALS,INC./RIDGEFIELD-2011-CN-00195CN

PATIENT
  Sex: Female

DRUGS (4)
  1. PRADAXA [Suspect]
     Indication: ATRIAL FIBRILLATION
     Dosage: 220 MG
     Dates: start: 20110201, end: 20110210
  2. COLCHICINE [Concomitant]
     Indication: GOUT
  3. ASPIRIN [Concomitant]
     Dosage: 81 MG
  4. ALLOPURINOL [Concomitant]
     Indication: GOUT
     Dosage: 200 MG

REACTIONS (3)
  - RENAL FAILURE [None]
  - GASTROINTESTINAL HAEMORRHAGE [None]
  - MELAENA [None]
